FAERS Safety Report 8926393 (Version 2)
Quarter: 2013Q2

REPORT INFORMATION
  Report Type: Spontaneous
  Country: BE (occurrence: BE)
  Receive Date: 20121127
  Receipt Date: 20130503
  Transmission Date: 20140414
  Serious: Yes (Death, Hospitalization)
  Sender: FDA-Public Use
  Company Number: BE-GLAXOSMITHKLINE-B0847516A

PATIENT
  Age: 75 Year
  Sex: Male
  Weight: 63.7 kg

DRUGS (8)
  1. VOTRIENT [Suspect]
     Indication: RENAL CELL CARCINOMA
     Dosage: 600MG PER DAY
     Route: 048
     Dates: start: 20121109, end: 20121116
  2. ASAFLOW [Concomitant]
     Indication: CORONARY ARTERY DISEASE
     Dosage: 80MG PER DAY
     Route: 048
     Dates: start: 2005, end: 20121116
  3. ZESTRIL [Concomitant]
     Indication: HYPERTENSION
     Dosage: 5MG PER DAY
     Route: 048
     Dates: start: 2002, end: 20121116
  4. L-THYROXINE [Concomitant]
     Indication: LARYNGECTOMY
     Dosage: 125UG PER DAY
     Route: 048
     Dates: start: 201008, end: 20121116
  5. PANTOMED (PANTROPRAZOLE) [Concomitant]
     Indication: PROPHYLAXIS
     Dosage: 20MG PER DAY
     Route: 048
     Dates: start: 2010, end: 20121116
  6. LYSOMUCIL [Concomitant]
     Indication: MUCOUS MEMBRANE DISORDER
     Dosage: 600MG PER DAY
     Route: 048
     Dates: start: 20100810, end: 20121116
  7. MOVICOL [Concomitant]
     Indication: CONSTIPATION
     Dosage: 1SAC THREE TIMES PER DAY
     Route: 048
     Dates: start: 20121102, end: 20121116
  8. BRUFEN [Concomitant]
     Indication: GOUT
     Dosage: 600MG TWICE PER DAY
     Route: 048
     Dates: start: 20121111, end: 20121116

REACTIONS (6)
  - Acute hepatic failure [Fatal]
  - Transaminases increased [Unknown]
  - Yellow skin [Unknown]
  - Fatigue [Unknown]
  - Malaise [Unknown]
  - Vomiting [Unknown]
